FAERS Safety Report 9088750 (Version 2)
Quarter: 2013Q3

REPORT INFORMATION
  Report Type: Report from Study
  Country: JP (occurrence: JP)
  Receive Date: 20130201
  Receipt Date: 20130813
  Transmission Date: 20140515
  Serious: Yes (Hospitalization)
  Sender: FDA-Public Use
  Company Number: JP-ACTELION-A-CH2013-78457

PATIENT
  Age: 70 Year
  Sex: Female
  Weight: 63.8 kg

DRUGS (14)
  1. TRACLEER [Suspect]
     Indication: PULMONARY ARTERIAL HYPERTENSION
     Dosage: 62.5 MG, BID
     Route: 048
     Dates: start: 20120831, end: 20120919
  2. FUROSEMIDE [Concomitant]
  3. LANSOPRAZOLE [Concomitant]
  4. ALLOPURINOL [Concomitant]
  5. OLMESARTAN MEDOXOMIL [Concomitant]
  6. ALFACALCIDOL [Concomitant]
  7. CILOSTAZOL [Concomitant]
  8. NIFEDIPINE [Concomitant]
  9. ACETAMINOPHEN [Concomitant]
  10. MAGNESIUM OXIDE [Concomitant]
  11. SENNOSIDE [Concomitant]
  12. ETIZOLAM [Concomitant]
  13. ZOLPIDEM TARTRATE [Concomitant]
  14. RAMELTEON [Concomitant]

REACTIONS (7)
  - Liver disorder [Recovering/Resolving]
  - Cholecystitis acute [Recovered/Resolved]
  - Aspartate aminotransferase increased [Recovering/Resolving]
  - Alanine aminotransferase increased [Recovering/Resolving]
  - Blood alkaline phosphatase increased [Recovering/Resolving]
  - Blood bilirubin increased [Recovering/Resolving]
  - Gamma-glutamyltransferase [Recovering/Resolving]
